FAERS Safety Report 9163053 (Version 2)
Quarter: 2013Q1

REPORT INFORMATION
  Report Type: Report from Study
  Country: CA (occurrence: CA)
  Receive Date: 20130314
  Receipt Date: 20130321
  Transmission Date: 20140127
  Serious: Yes (Hospitalization, Other)
  Sender: FDA-Public Use
  Company Number: CA-ROCHE-1088625

PATIENT
  Age: 42 Year
  Sex: Male
  Weight: 127.9 kg

DRUGS (8)
  1. RITUXAN [Suspect]
     Indication: GRANULOMATOSIS WITH POLYANGIITIS
     Route: 042
     Dates: start: 20120110
  2. RITUXAN [Suspect]
     Indication: GRANULOMATOSIS WITH POLYANGIITIS
     Route: 011
     Dates: start: 20120626
  3. RITUXAN [Suspect]
     Route: 042
     Dates: start: 20120709
  4. INSULIN [Concomitant]
  5. PREDNISONE [Concomitant]
  6. ROCALTROL [Concomitant]
  7. RABEPRAZOLE [Concomitant]
  8. EPREX [Concomitant]

REACTIONS (12)
  - Dyspnoea [Recovered/Resolved]
  - Blister [Recovered/Resolved]
  - Granulomatosis with polyangiitis [Not Recovered/Not Resolved]
  - Chest pain [Recovered/Resolved]
  - Retroperitoneal haemorrhage [Not Recovered/Not Resolved]
  - Hypotension [Not Recovered/Not Resolved]
  - Haemoglobin decreased [Not Recovered/Not Resolved]
  - Nausea [Recovered/Resolved]
  - Fatigue [Recovered/Resolved]
  - Headache [Recovered/Resolved]
  - Pain [Recovered/Resolved]
  - Abdominal discomfort [Recovered/Resolved]
